FAERS Safety Report 8921443 (Version 1)
Quarter: 2012Q4

REPORT INFORMATION
  Report Type: 
  Country: US (occurrence: US)
  Receive Date: 20121122
  Receipt Date: 20121122
  Transmission Date: 20130627
  Serious: Yes (Other)
  Sender: FDA-Public Use
  Company Number: PHEH2012US022673

PATIENT
  Sex: Female

DRUGS (2)
  1. SANDOSTATIN LAR DEPOT [Suspect]
     Dosage: 30 UNK, UNK
  2. EFFEXOR [Concomitant]
     Dosage: 75 mg, TID

REACTIONS (5)
  - Dysstasia [Unknown]
  - Malaise [Unknown]
  - Wrong technique in drug usage process [Unknown]
  - Incorrect dose administered [Unknown]
  - Feeling abnormal [Unknown]
